FAERS Safety Report 13608800 (Version 1)
Quarter: 2017Q2

REPORT INFORMATION
  Report Type: Report from Study
  Country: KR (occurrence: KR)
  Receive Date: 20170602
  Receipt Date: 20170602
  Transmission Date: 20170830
  Serious: Yes (Hospitalization)
  Sender: FDA-Public Use
  Company Number: KR-EISAI MEDICAL RESEARCH-EC-2017-028004

PATIENT
  Age: 46 Year
  Sex: Female
  Weight: 53.3 kg

DRUGS (6)
  1. HALAVEN [Suspect]
     Active Substance: ERIBULIN MESYLATE
     Indication: BREAST CANCER METASTATIC
     Dates: start: 20170515, end: 20170515
  2. HALAVEN [Suspect]
     Active Substance: ERIBULIN MESYLATE
     Dates: start: 20170526, end: 20170526
  3. LEGALON [Concomitant]
     Active Substance: MILK THISTLE
  4. TARGIN PR [Concomitant]
  5. DICAMAX D [Concomitant]
  6. ZOMEBON [Concomitant]

REACTIONS (1)
  - Neutropenia [Recovered/Resolved]

NARRATIVE: CASE EVENT DATE: 20170522
